FAERS Safety Report 6092433-5 (Version None)
Quarter: 2009Q1

REPORT INFORMATION
  Report Type: 
  Country: None (occurrence: None)
  Receive Date: 20090225
  Receipt Date: 20090218
  Transmission Date: 20090719
  Serious: Yes (Hospitalization, Other)
  Sender: FDA-Public Use
  Company Number: JP-BAYER-200812364BYL

PATIENT
  Age: 60 Year
  Sex: Male
  Weight: 69 kg

DRUGS (10)
  1. NEXAVAR [Suspect]
     Indication: RENAL CELL CARCINOMA STAGE IV
     Dosage: UNIT DOSE: 200 MG
     Route: 048
     Dates: start: 20080820, end: 20080922
  2. NEXAVAR [Suspect]
     Dosage: UNIT DOSE: 200 MG
     Route: 048
     Dates: start: 20081028, end: 20090203
  3. ADALAT CC [Concomitant]
     Route: 048
     Dates: start: 20080820, end: 20080922
  4. ADALAT CC [Concomitant]
     Route: 048
     Dates: start: 20080923
  5. DIOVAN [Concomitant]
     Route: 048
     Dates: start: 20080820, end: 20081111
  6. DIOVAN [Concomitant]
     Route: 048
     Dates: start: 20081112
  7. TENORMIN [Concomitant]
     Route: 048
     Dates: start: 20080820
  8. MEILAX [Concomitant]
     Route: 048
     Dates: start: 20080820
  9. MOBIC [Concomitant]
     Route: 048
     Dates: start: 20080820
  10. ZYLORIC [Concomitant]
     Route: 048
     Dates: start: 20081209

REACTIONS (11)
  - ABDOMINAL PAIN [None]
  - ANOREXIA [None]
  - DIARRHOEA [None]
  - HEPATIC FUNCTION ABNORMAL [None]
  - HYPERTENSION [None]
  - OROPHARYNGEAL PAIN [None]
  - PALMAR-PLANTAR ERYTHRODYSAESTHESIA SYNDROME [None]
  - PANCREATITIS ACUTE [None]
  - PROTEINURIA [None]
  - PYREXIA [None]
  - TOXIC SKIN ERUPTION [None]
